FAERS Safety Report 4656366-0 (Version None)
Quarter: 2005Q2

REPORT INFORMATION
  Report Type: 
  Country: None (occurrence: None)
  Receive Date: 20050502
  Receipt Date: 20050308
  Transmission Date: 20051028
  Serious: Yes (Other)
  Sender: FDA-Public Use
  Company Number: 200511078BBE

PATIENT
  Sex: Male

DRUGS (10)
  1. KOATE [Suspect]
     Indication: HAEMOPHILIA
  2. KOATE [Suspect]
     Indication: HAEMOPHILIA
  3. FACTOR VIII (BAXTER)(FACTOR VIII) [Suspect]
     Indication: HAEMOPHILIA
  4. FACTOR IX (BAXTER)(FACTOR IX) [Suspect]
     Indication: HAEMOPHILIA
  5. FACTOR VIII (ARMOUR)(FACTOR VIII) [Suspect]
     Indication: HAEMOPHILIA
  6. FACTOR IX (ARMOUR)(FACTOR IX) [Suspect]
     Indication: HAEMOPHILIA
  7. FACTOR VIII (AVENTIS BEHRING)(FACTOR VIII) [Suspect]
     Indication: HAEMOPHILIA
  8. FACTOR IX (AVENTIS BEHRING) (FACTOR IX) [Suspect]
     Indication: HAEMOPHILIA
  9. FACTOR VIII (ALPHA THERAPEUTICS)(FACTOR VIII) [Suspect]
     Indication: HAEMOPHILIA
  10. FACTOR IX (ALPHA THERAPEUTICS)(FACTOR IX) [Suspect]
     Indication: HAEMOPHILIA

REACTIONS (4)
  - ADVERSE EVENT [None]
  - HEPATITIS C VIRUS [None]
  - HIV TEST POSITIVE [None]
  - PHARMACEUTICAL PRODUCT COMPLAINT [None]
